FAERS Safety Report 4610131-9 (Version None)
Quarter: 2005Q1

REPORT INFORMATION
  Report Type: 
  Country: None (occurrence: None)
  Receive Date: 20050316
  Receipt Date: 20050304
  Transmission Date: 20050727
  Serious: Yes (Death)
  Sender: FDA-Public Use
  Company Number: DE-JNJFOC-20050301420

PATIENT
  Age: 35 Year
  Sex: Male
  Weight: 117.8 kg

DRUGS (3)
  1. RISPERDAL [Suspect]
     Indication: DRUG USE FOR UNKNOWN INDICATION
     Route: 049
  2. DELIX [Concomitant]
     Route: 049
  3. ACC 200 [Concomitant]
     Route: 049

REACTIONS (3)
  - PULMONARY EMBOLISM [None]
  - SLEEP APNOEA SYNDROME [None]
  - SUDDEN DEATH [None]
